FAERS Safety Report 8011628-4 (Version None)
Quarter: 2011Q4

REPORT INFORMATION
  Report Type: 
  Country: None (occurrence: None)
  Receive Date: 20111228
  Receipt Date: 20111219
  Transmission Date: 20120403
  Serious: Yes (Hospitalization, Other)
  Sender: FDA-Public Use
  Company Number: US-BAYER-2011-050461

PATIENT
  Age: 32 Year
  Sex: Female
  Weight: 55.329 kg

DRUGS (3)
  1. DURADRIN [Concomitant]
     Indication: MIGRAINE
     Dosage: UNK UNK, PRN
     Dates: start: 20061024
  2. MIDRIN [Suspect]
     Indication: MIGRAINE
  3. YAZ [Suspect]
     Dosage: UNK
     Dates: start: 20061201, end: 20070701

REACTIONS (6)
  - ARTERIOSPASM CORONARY [None]
  - GENERAL PHYSICAL HEALTH DETERIORATION [None]
  - PAIN [None]
  - MYOCARDIAL INFARCTION [None]
  - EMOTIONAL DISTRESS [None]
  - ANXIETY [None]
